FAERS Safety Report 21683665 (Version 2)
Quarter: 2023Q1

REPORT INFORMATION
  Report Type: Report from Study
  Country: US (occurrence: US)
  Receive Date: 20221205
  Receipt Date: 20230131
  Transmission Date: 20230417
  Serious: Yes (Other)
  Sender: FDA-Public Use
  Company Number: US-ABBVIE-4177608

PATIENT
  Sex: Male

DRUGS (1)
  1. HUMIRA [Suspect]
     Active Substance: ADALIMUMAB
     Indication: Psoriasis
     Route: 058
     Dates: start: 20190902

REACTIONS (4)
  - Parathyroidectomy [Recovering/Resolving]
  - Urine calcium increased [Unknown]
  - Thyroid disorder [Unknown]
  - Benign neoplasm of thyroid gland [Unknown]
